FAERS Safety Report 8403166-1 (Version None)
Quarter: 2012Q2

REPORT INFORMATION
  Report Type: 
  Country: None (occurrence: None)
  Receive Date: 20120601
  Receipt Date: 20120523
  Transmission Date: 20120825
  Serious: Yes (Other)
  Sender: FDA-Public Use
  Company Number: CA-JNJFOC-20120519331

PATIENT
  Age: 42 Year
  Sex: Female

DRUGS (8)
  1. VINBLASTINE SULFATE [Suspect]
     Indication: LYMPHOMA AIDS RELATED
     Route: 065
  2. TENOFOVIR DISOPROXIL FUMARATE [Concomitant]
     Indication: HIV INFECTION
     Route: 065
  3. DOXORUBICIN HYDROCHLORIDE [Suspect]
     Indication: LYMPHOMA AIDS RELATED
     Route: 042
  4. DACARBAZINE [Suspect]
     Indication: LYMPHOMA AIDS RELATED
     Route: 065
  5. LOPINAVIR/RITONAVIR [Concomitant]
     Indication: HIV INFECTION
     Route: 065
  6. BLEOMYCIN SULFATE [Suspect]
     Indication: LYMPHOMA AIDS RELATED
     Route: 065
  7. TRIMETHOPRIM [Suspect]
     Indication: ANTIFUNGAL PROPHYLAXIS
     Route: 065
  8. EMTRICITABINE [Concomitant]
     Indication: HIV INFECTION
     Route: 065

REACTIONS (6)
  - GASTROINTESTINAL DISORDER [None]
  - NEUTROPENIA [None]
  - ABDOMINAL PAIN [None]
  - OFF LABEL USE [None]
  - VOMITING [None]
  - PYREXIA [None]
